FAERS Safety Report 6505290-7 (Version None)
Quarter: 2009Q4

REPORT INFORMATION
  Report Type: 
  Country: None (occurrence: None)
  Receive Date: 20091218
  Receipt Date: 20091207
  Transmission Date: 20100525
  Serious: Yes (Hospitalization)
  Sender: FDA-Public Use
  Company Number: EC-JNJFOC-20091204884

PATIENT
  Age: 60 Year
  Sex: Female

DRUGS (5)
  1. ZALDIAR [Suspect]
     Indication: ARTHRALGIA
     Route: 048
  2. METAMIZOLE [Concomitant]
     Indication: PAIN
  3. OMEPRAZOLE [Concomitant]
  4. HEPARIN [Concomitant]
     Route: 058
  5. NORMAL SALINE [Concomitant]

REACTIONS (6)
  - ASTHENIA [None]
  - BLOOD PRESSURE ABNORMAL [None]
  - BRADYCARDIA [None]
  - HEADACHE [None]
  - NAUSEA [None]
  - VOMITING [None]
